FAERS Safety Report 11227212 (Version 2)
Quarter: 2015Q3

REPORT INFORMATION
  Report Type: Report from Study
  Country: US (occurrence: US)
  Receive Date: 20150630
  Receipt Date: 20150804
  Transmission Date: 20151125
  Serious: Yes (Hospitalization)
  Sender: FDA-Public Use
  Company Number: PHEH2015US012020

PATIENT
  Age: 73 Year
  Sex: Female
  Weight: 61.2 kg

DRUGS (1)
  1. EXTAVIA [Suspect]
     Active Substance: INTERFERON BETA-1B
     Indication: MULTIPLE SCLEROSIS
     Dosage: 0.25 MG, QOD
     Route: 058
     Dates: start: 20150309

REACTIONS (2)
  - Post herpetic neuralgia [Recovering/Resolving]
  - Herpes zoster [Recovered/Resolved with Sequelae]

NARRATIVE: CASE EVENT DATE: 2015
